FAERS Safety Report 21209622 (Version 2)
Quarter: 2022Q3

REPORT INFORMATION
  Report Type: Spontaneous
  Country: US (occurrence: US)
  Receive Date: 20220813
  Receipt Date: 20220824
  Transmission Date: 20221027
  Serious: Yes (Hospitalization, Other)
  Sender: FDA-Public Use
  Company Number: US-AMGEN-USASP2022135471

PATIENT
  Age: 68 Year
  Sex: Female
  Weight: 79.819 kg

DRUGS (4)
  1. PROLIA [Suspect]
     Active Substance: DENOSUMAB
     Indication: Osteoporosis postmenopausal
     Dosage: 60 MILLIGRAM, Q6MO
     Route: 065
     Dates: start: 20220711
  2. VITAMIN D [Concomitant]
     Active Substance: VITAMIN D NOS
     Dosage: UNK
  3. CALCIUM [Concomitant]
     Active Substance: CALCIUM
     Dosage: UNK
  4. SANDOSTATIN [Concomitant]
     Active Substance: OCTREOTIDE ACETATE
     Dosage: UNK

REACTIONS (6)
  - Unresponsive to stimuli [Recovered/Resolved]
  - Hypoglycaemia [Unknown]
  - Hypocalcaemia [Recovered/Resolved]
  - Hypoaesthesia [Unknown]
  - Paraesthesia [Unknown]
  - Hypothermia [Unknown]

NARRATIVE: CASE EVENT DATE: 20220101
